FAERS Safety Report 5599563-2 (Version None)
Quarter: 2008Q1

REPORT INFORMATION
  Report Type: 
  Country: None (occurrence: None)
  Receive Date: 20080123
  Receipt Date: 20080116
  Transmission Date: 20080703
  Serious: Yes (Other)
  Sender: FDA-Public Use
  Company Number: PHEH2007US13841

PATIENT
  Age: 59 Year
  Sex: Female
  Weight: 70.294 kg

DRUGS (3)
  1. COMBIPATCH [Suspect]
     Indication: MENOPAUSE
     Dosage: UNK, UNK
     Route: 062
     Dates: start: 19980101, end: 20041001
  2. PREMARIN [Suspect]
     Indication: MENOPAUSE
     Dosage: 0.3 MG, UNK
     Dates: start: 19960101, end: 19980101
  3. PROVERA [Suspect]
     Indication: MENOPAUSE
     Dosage: 2.5 MG, UNK
     Dates: start: 19960101, end: 19980101

REACTIONS (11)
  - BREAST CALCIFICATIONS [None]
  - BREAST CANCER [None]
  - BREAST PROSTHESIS USER [None]
  - BREAST RECONSTRUCTION [None]
  - COLONOSCOPY ABNORMAL [None]
  - MASTECTOMY [None]
  - MITRAL VALVE PROLAPSE [None]
  - OSTEOARTHRITIS [None]
  - PAIN [None]
  - POLYP COLORECTAL [None]
  - POLYPECTOMY [None]
